FAERS Safety Report 16165631 (Version 1)
Quarter: 2019Q2

REPORT INFORMATION
  Report Type: Spontaneous
  Country: CN (occurrence: CN)
  Receive Date: 20190405
  Receipt Date: 20190405
  Transmission Date: 20190711
  Serious: Yes (Other)
  Sender: FDA-Public Use
  Company Number: CN-BAXTER-2019BAX006593

PATIENT
  Age: 7 Year
  Sex: Female
  Weight: 24 kg

DRUGS (22)
  1. 0.9% SODIUM CHLORIDE INJECTION [Suspect]
     Active Substance: SODIUM CHLORIDE
     Dosage: CYTOSAR+DEXAMETHASONE SODIUM PHOSPHATE+SODIUM CHLORIDE
     Route: 037
     Dates: start: 20181201, end: 20181201
  2. 5% GLUCOSE  INJECTION [Suspect]
     Active Substance: DEXTROSE
     Indication: MEDICATION DILUTION
     Dosage: DILUTED WITH CYTOSAR 0.045 GRAM
     Route: 041
     Dates: start: 20181122, end: 20181129
  3. PEGASPARGASE [Suspect]
     Active Substance: PEGASPARGASE
     Dosage: DOSE RE-INTRODUCED
     Route: 030
  4. CYTOSAR [Suspect]
     Active Substance: CYTARABINE
     Indication: ACUTE LYMPHOCYTIC LEUKAEMIA
     Dosage: CYTOSAR+GS
     Route: 041
     Dates: start: 20181122, end: 20181129
  5. 0.9% SODIUM CHLORIDE INJECTION [Suspect]
     Active Substance: SODIUM CHLORIDE
     Indication: MEDICATION DILUTION
     Dosage: CYCLOPHOSPHAMIDE+NS
     Route: 041
     Dates: start: 20181122, end: 20181122
  6. 0.9% SODIUM CHLORIDE INJECTION [Suspect]
     Active Substance: SODIUM CHLORIDE
     Dosage: DOSE RE-INTRODUCED, CYCLOPHOSPHAMIDE+NS
     Route: 041
  7. DEXAMETHASONE SODIUM PHOSPHATE. [Suspect]
     Active Substance: DEXAMETHASONE SODIUM PHOSPHATE
     Indication: ACUTE LYMPHOCYTIC LEUKAEMIA
     Dosage: CYTOSAR+DEXAMETHASONE SODIUM PHOSPHATE+SODIUM CHLORIDE
     Route: 037
     Dates: start: 20181201, end: 20181201
  8. DEXAMETHASONE SODIUM PHOSPHATE. [Suspect]
     Active Substance: DEXAMETHASONE SODIUM PHOSPHATE
     Dosage: DOSE RE-INTRODUCED, CYTOSAR+DEXAMETHASONE SODIUM PHOSPHATE+SODIUM CHLORIDE
     Route: 037
  9. DEXAMETHASONE SODIUM PHOSPHATE. [Suspect]
     Active Substance: DEXAMETHASONE SODIUM PHOSPHATE
     Dosage: DOSE RE-INTRODUCED, METHOTREXATE+DEXAMETHASONE SODIUM PHOSPHATE +NS
     Route: 037
  10. METHOTREXATE. [Suspect]
     Active Substance: METHOTREXATE
     Indication: ACUTE LYMPHOCYTIC LEUKAEMIA
     Dosage: METHOTREXATE+DEXAMETHASONE SODIUM PHOSPHATE+NS
     Route: 037
     Dates: start: 20181201, end: 20181201
  11. 0.9% SODIUM CHLORIDE INJECTION [Suspect]
     Active Substance: SODIUM CHLORIDE
     Dosage: DOSE RE-INTRODUCED, METHOTREXATE+DEXAMETHASONE SODIUM PHOSPHATE INJECTION+NS
     Route: 037
  12. ENDOXAN [Suspect]
     Active Substance: CYCLOPHOSPHAMIDE
     Dosage: DOSE RE-INTRODUCED, CYCLOPHOSPHAMIDE+NS
     Route: 041
  13. 0.9% SODIUM CHLORIDE INJECTION [Suspect]
     Active Substance: SODIUM CHLORIDE
     Dosage: METHOTREXATE+DEXAMETHASONE SODIUM PHOSPHATE INJECTION+NS
     Route: 037
     Dates: start: 20181201, end: 20181201
  14. 5% GLUCOSE  INJECTION [Suspect]
     Active Substance: DEXTROSE
     Dosage: DOSE RE-INTRODUCED WITH CYTOSAR.
     Route: 041
  15. METHOTREXATE. [Suspect]
     Active Substance: METHOTREXATE
     Dosage: DOSE RE-INTRODUCED, METHOTREXATE+DEXAMETHASONE SODIUM PHOSPHATE+NS
     Route: 037
  16. CYTOSAR [Suspect]
     Active Substance: CYTARABINE
     Dosage: DOSE RE-INTRODUCED, CYTOSAR+DEXAMETHASONE SODIUM PHOSPHATE+NS
     Route: 037
  17. PEGASPARGASE [Suspect]
     Active Substance: PEGASPARGASE
     Indication: ACUTE LYMPHOCYTIC LEUKAEMIA
     Route: 030
     Dates: start: 20181120, end: 20181120
  18. ENDOXAN [Suspect]
     Active Substance: CYCLOPHOSPHAMIDE
     Indication: ACUTE LYMPHOCYTIC LEUKAEMIA
     Dosage: CYCLOPHOSPHAMIDE+NS
     Route: 041
     Dates: start: 20181122, end: 20181122
  19. 0.9% SODIUM CHLORIDE INJECTION [Suspect]
     Active Substance: SODIUM CHLORIDE
     Dosage: DOSE RE-INTRODUCED CYTOSAR+DEXAMETHASONE SODIUM PHOSPHATE+SODIUM CHLORIDE
     Route: 037
  20. DEXAMETHASONE SODIUM PHOSPHATE. [Suspect]
     Active Substance: DEXAMETHASONE SODIUM PHOSPHATE
     Dosage: METHOTREXATE+DEXAMETHASONE SODIUM PHOSPHATE +NS
     Route: 037
     Dates: start: 20181201, end: 20181201
  21. CYTOSAR [Suspect]
     Active Substance: CYTARABINE
     Dosage: CYTOSAR+DEXAMETHASONE SODIUM PHOSPHATE+SODIUM CHLORIDE
     Route: 037
     Dates: start: 20181201, end: 20181201
  22. CYTOSAR [Suspect]
     Active Substance: CYTARABINE
     Dosage: DOSE RE-INTRODUCED, CYTOSAR+GS
     Route: 041

REACTIONS (1)
  - Bone marrow failure [Recovering/Resolving]

NARRATIVE: CASE EVENT DATE: 20181204
